FAERS Safety Report 8784557 (Version 1)
Quarter: 2012Q4

REPORT INFORMATION
  Report Type: Spontaneous
  Country: US (occurrence: None)
  Receive Date: 20120907
  Receipt Date: 20120907
  Transmission Date: 20130627
  Serious: No
  Sender: FDA-Public Use
  Company Number: None

PATIENT
  Age: 7 Year
  Sex: Male
  Weight: 34.02 kg

DRUGS (1)
  1. MONTELUKAST [Suspect]
     Indication: ASTHMA
     Dosage: 5 mg pill once daily po
     Route: 048
     Dates: start: 20120831, end: 20120902

REACTIONS (4)
  - Aggression [None]
  - Agitation [None]
  - Crying [None]
  - Autophobia [None]
